FAERS Safety Report 13275345 (Version 1)
Quarter: 2017Q1

REPORT INFORMATION
  Report Type: Report from Study
  Country: AT (occurrence: AT)
  Receive Date: 20170228
  Receipt Date: 20170228
  Transmission Date: 20170428
  Serious: Yes (Life-Threatening, Hospitalization, Other)
  Sender: FDA-Public Use
  Company Number: AT-BAXTER-2016BAX025020

PATIENT
  Age: 72 Year
  Sex: Male
  Weight: 74.4 kg

DRUGS (68)
  1. VENETOCLAX [Suspect]
     Active Substance: VENETOCLAX
     Dosage: MOST RECENT DOSE PRIOR TO ONSET OF INCREASED CRP
     Route: 048
     Dates: start: 20160327
  2. RITUXIMAB [Suspect]
     Active Substance: RITUXIMAB
     Dosage: MOST RECENT DOSE PRIOR TO ONSET OF SECOND EPISODE OF NEUTROPENIA
     Route: 042
     Dates: start: 20160527
  3. MUCOBENE [Concomitant]
     Indication: COUGH
     Route: 065
     Dates: start: 20160213, end: 20160301
  4. APREDNISLON [Concomitant]
     Active Substance: PREDNISOLONE
     Indication: PRODUCT USED FOR UNKNOWN INDICATION
     Route: 065
  5. ENDOXAN ^BAXTER^ 200 MG - TROCKENSTECHAMPULLE [Suspect]
     Active Substance: CYCLOPHOSPHAMIDE
     Indication: DIFFUSE LARGE B-CELL LYMPHOMA
     Dosage: 750 MG/M2, MOST RECENT DOSE PRIOR TO ONSET OF NEUTROPENIA (FIRST EPISODE, FIRST OCCURENCE)
     Route: 042
     Dates: start: 20160227
  6. ENDOXAN ^BAXTER^ 200 MG - TROCKENSTECHAMPULLE [Suspect]
     Active Substance: CYCLOPHOSPHAMIDE
     Dosage: MOST RECENT DOSE PRIOR TO ONSET OF NEUTROPENIA (SECOND EPISODE)
     Route: 042
     Dates: start: 20160616
  7. DOXORUBICIN [Suspect]
     Active Substance: DOXORUBICIN
     Dosage: MOST RECENT DOSE PRIOR TO ONSET OF NEUTROPENIA (FIRST EPISODE, SECOND OCCURENCE)
     Route: 042
     Dates: start: 20160506
  8. VINCRISTINE [Suspect]
     Active Substance: VINCRISTINE
     Dosage: MOST RECENT DOSE PRIOR TO ONSET OF INCREASED CRP
     Route: 042
     Dates: start: 20160318
  9. VINCRISTINE [Suspect]
     Active Substance: VINCRISTINE
     Dosage: MOST RECENT DOSE PRIOR TO ONSET OF FEBRILE NEUTROPENIA AND RECURRENT INCREASED CRP
     Route: 042
     Dates: start: 20160411
  10. VINCRISTINE [Suspect]
     Active Substance: VINCRISTINE
     Dosage: MOST RECENT DOSE PRIOR TO ONSET OF NEUTROPENIA (FIRST EPISODE, SECOND OCCURENCE)
     Route: 042
     Dates: start: 20160506
  11. PREDNISONE. [Suspect]
     Active Substance: PREDNISONE
     Dosage: DAYS 1-5 OF EACH 21-DAY CYCLE, MOST RECENT DOSE PRIOR TO ONSET OF INCREASED CRP
     Route: 048
     Dates: start: 20160318
  12. PREDNISONE. [Suspect]
     Active Substance: PREDNISONE
     Dosage: DAYS 1-5 OF EACH 21-DAY CYCLE, MOST RECENT DOSE PRIOR TO ONSET OF FEBRILE NEUTROPENIA AND RECURRENT
     Route: 048
     Dates: start: 20160415
  13. TAZONAM [Concomitant]
     Active Substance: TAZOBACTAM
     Indication: URINARY TRACT INFECTION
     Route: 065
     Dates: start: 20160213, end: 20160218
  14. DOXORUBICIN [Suspect]
     Active Substance: DOXORUBICIN
     Dosage: MOST RECENT DOSE PRIOR TO ONSET OF NEUTROPENIA (SECOND EPISODE)
     Route: 042
     Dates: start: 20160616
  15. VINCRISTINE [Suspect]
     Active Substance: VINCRISTINE
     Dosage: MOST RECENT DOSE PRIOR TO ONSET OF NEUTROPENIA (SECOND EPISODE)
     Route: 042
     Dates: start: 20160527
  16. GUTTALAX [Concomitant]
     Indication: CONSTIPATION PROPHYLAXIS
     Route: 065
     Dates: start: 20160215
  17. GLANDOMED [Concomitant]
     Indication: PROPHYLAXIS
     Route: 065
     Dates: start: 20160228
  18. TAZONAM [Concomitant]
     Active Substance: TAZOBACTAM
     Indication: ANTIBIOTIC PROPHYLAXIS
     Route: 065
     Dates: start: 20160311, end: 20160314
  19. SUCRALAN [Concomitant]
     Indication: GASTROOESOPHAGEAL REFLUX DISEASE
     Route: 065
     Dates: start: 20160423
  20. CLAVAMOX [Concomitant]
     Active Substance: AMOXICILLIN\CLAVULANATE POTASSIUM
     Indication: URINARY TRACT INFECTION
     Route: 065
     Dates: start: 20160314
  21. ZOVIRAX [Concomitant]
     Active Substance: ACYCLOVIR
     Indication: INFECTION PROPHYLAXIS
     Route: 065
     Dates: start: 20160422, end: 20160427
  22. ENDOXAN ^BAXTER^ 200 MG - TROCKENSTECHAMPULLE [Suspect]
     Active Substance: CYCLOPHOSPHAMIDE
     Dosage: MOST RECENT DOSE PRIOR TO ONSET OF NEUTROPENIA (FIRST EPISODE, SECOND OCCURENCE)
     Route: 042
     Dates: start: 20160506
  23. VENETOCLAX [Suspect]
     Active Substance: VENETOCLAX
     Indication: DIFFUSE LARGE B-CELL LYMPHOMA
     Dosage: MOST RECENT DOSE PRIOR TO ONSET OF INCREASED CRP
     Route: 048
     Dates: start: 20160301
  24. RITUXIMAB [Suspect]
     Active Substance: RITUXIMAB
     Indication: DIFFUSE LARGE B-CELL LYMPHOMA
     Route: 042
     Dates: start: 20160226
  25. RITUXIMAB [Suspect]
     Active Substance: RITUXIMAB
     Dosage: MOST RECENT DOSE PRIOR TO ONSET OF NEUTROPENIA (FIRST EPISODE, SECOND OCCURENCE)
     Route: 042
     Dates: start: 20160506
  26. DOXORUBICIN [Suspect]
     Active Substance: DOXORUBICIN
     Indication: DIFFUSE LARGE B-CELL LYMPHOMA
     Dosage: 50 MG/M2, MOST RECENT DOSE PRIOR TO ONSET OF THE NEUTROPENIA (FIRST EPISODE, FIRST OCCURENCE)
     Route: 042
     Dates: start: 20160227
  27. DOXORUBICIN [Suspect]
     Active Substance: DOXORUBICIN
     Dosage: MOST RECENT DOSE PRIOR TO ONSET OF NEUTROPENIA (SECOND EPISODE)
     Route: 042
     Dates: start: 20160527
  28. PREDNISONE. [Suspect]
     Active Substance: PREDNISONE
     Indication: DIFFUSE LARGE B-CELL LYMPHOMA
     Dosage: DAYS 1-5 OF EACH 21-DAY CYCLE
     Route: 048
     Dates: start: 20160226
  29. MAGNESIUM SULFATE. [Concomitant]
     Active Substance: MAGNESIUM SULFATE
     Indication: NUTRITIONAL SUPPLEMENTATION
     Route: 065
     Dates: start: 20160303, end: 20160303
  30. ENDOXAN ^BAXTER^ 200 MG - TROCKENSTECHAMPULLE [Suspect]
     Active Substance: CYCLOPHOSPHAMIDE
     Dosage: MOST RECENT DOSE PRIOR TO ONSET OF FEBRILE NEUTROPENIA AND RECURRENT INCREASED CRP
     Route: 042
     Dates: start: 20160411
  31. VENETOCLAX [Suspect]
     Active Substance: VENETOCLAX
     Dosage: MOST RECENT DOSE PRIOR TO ONSET OF FEBRILE NEUTROPENIA
     Route: 048
     Dates: start: 20160419
  32. RITUXIMAB [Suspect]
     Active Substance: RITUXIMAB
     Dosage: MOST RECENT DOSE PRIOR TO ONSET OF SECOND EPISODE OF NEUTROPENIA
     Route: 042
     Dates: start: 20160616
  33. DOXORUBICIN [Suspect]
     Active Substance: DOXORUBICIN
     Dosage: MOST RECENT DOSE PRIOR TO ONSET OF INCREASED CRP
     Route: 042
     Dates: start: 20160318
  34. PREDNISONE. [Suspect]
     Active Substance: PREDNISONE
     Dosage: DAYS 1-5 OF EACH 21-DAY CYCLE, MOST RECENT DOSE PRIOR TO ONSET OF NEUTROPENIA (FIRST EPISODE, FIRST
     Route: 048
     Dates: start: 20160301
  35. PREDNISONE. [Suspect]
     Active Substance: PREDNISONE
     Dosage: DAYS 1-5 OF EACH 21-DAY CYCLE, MOST RECENT DOSE PRIOR TO ONSET OF NEUTROPENIA (SECOND EPISODE)
     Route: 048
     Dates: start: 20160620
  36. THYREX [Concomitant]
     Active Substance: LEVOTHYROXINE SODIUM
     Indication: HYPOTHYROIDISM
     Route: 065
  37. LOVENOX [Concomitant]
     Active Substance: ENOXAPARIN SODIUM
     Indication: THROMBOSIS PROPHYLAXIS
     Route: 065
     Dates: start: 20160222, end: 20160304
  38. PASPERTIN [Concomitant]
     Active Substance: METOCLOPRAMIDE HYDROCHLORIDE
     Indication: PROPHYLAXIS OF NAUSEA AND VOMITING
     Route: 065
     Dates: start: 20160226
  39. ZOFRAN [Concomitant]
     Active Substance: ONDANSETRON HYDROCHLORIDE
     Indication: PROPHYLAXIS OF NAUSEA AND VOMITING
     Route: 065
     Dates: start: 20160226
  40. TAZONAM [Concomitant]
     Active Substance: TAZOBACTAM
     Indication: INFECTION PROPHYLAXIS
     Route: 065
     Dates: start: 20160420, end: 20160426
  41. DIFLUCAN [Concomitant]
     Active Substance: FLUCONAZOLE
     Indication: INFECTION PROPHYLAXIS
     Route: 065
     Dates: start: 20160422, end: 20160426
  42. PARACETAMOL [Concomitant]
     Active Substance: ACETAMINOPHEN
     Indication: PYREXIA
     Route: 065
     Dates: start: 20160420, end: 20160421
  43. UROMITEXAN 5 G/50 ML, SOLUTION INJECTABLE POUR PERFUSION EN FLACON [Suspect]
     Active Substance: MESNA
     Indication: DRUG THERAPY
     Route: 065
     Dates: start: 20160227
  44. VENETOCLAX [Suspect]
     Active Substance: VENETOCLAX
     Dosage: MOST RECENT DOSE PRIOR TO ONSET OF RECURRENT INCREASED CRP
     Route: 048
     Dates: start: 20160411
  45. VENETOCLAX [Suspect]
     Active Substance: VENETOCLAX
     Dosage: MOST RECENT DOSE PRIOR TO ONSET OF NEUTROPENIA (SECOND OCCURENCE, FIRST EPISODE)
     Route: 048
     Dates: start: 20160515
  46. VENETOCLAX [Suspect]
     Active Substance: VENETOCLAX
     Dosage: MOST RECENT DOSE PRIOR TO ONSET OF NEUTROPENIA (SECOND EPISODE)
     Route: 048
     Dates: start: 20160605
  47. RITUXIMAB [Suspect]
     Active Substance: RITUXIMAB
     Dosage: MOST RECENT DOSE PRIOR TO ONSET OF NEUTROPENIA (FIRST EPISODE, FIRST OCCURRENCE)
     Route: 042
     Dates: start: 20160227
  48. RITUXIMAB [Suspect]
     Active Substance: RITUXIMAB
     Dosage: MOST RECENT DOSE PRIOR TO ONSET OF INCREASED CRP
     Route: 042
     Dates: start: 20160318
  49. VINCRISTINE [Suspect]
     Active Substance: VINCRISTINE
     Indication: DIFFUSE LARGE B-CELL LYMPHOMA
     Dosage: 1.4 MG/M2, MOST RECENT DOSE PRIOR TO ONSET OF THE NEUTROPENIA (FIRST EPISODE, FIRST OCCURENCE)
     Route: 042
     Dates: start: 20160227
  50. THROMBO ASS [Concomitant]
     Active Substance: ASPIRIN
     Indication: CAROTID ARTERY STENOSIS
     Route: 065
  51. LISINOPRIL/HCTZ [Concomitant]
     Active Substance: HYDROCHLOROTHIAZIDE\LISINOPRIL
     Indication: HYPERTENSION
     Dosage: 20/25 MG
     Route: 065
  52. MEXALEN [Concomitant]
     Active Substance: ACETAMINOPHEN
     Indication: PAIN
     Route: 065
  53. RITUXIMAB [Suspect]
     Active Substance: RITUXIMAB
     Dosage: MOST RECENT DOSE PRIOR TO ONSET OF FEBRILE NEUTROPENIA AND RECURRENT INCREASED CRP
     Route: 042
     Dates: start: 20160411
  54. DOXORUBICIN [Suspect]
     Active Substance: DOXORUBICIN
     Dosage: MOST RECENT DOSE PRIOR TO ONSET OF FEBRILE NEUTROPENIA AND RECURRENT INCREASED CRP
     Route: 042
     Dates: start: 20160411
  55. VINCRISTINE [Suspect]
     Active Substance: VINCRISTINE
     Dosage: MOST RECENT DOSE PRIOR TO ONSET OF NEUTROPENIA (SECOND EPISODE)
     Route: 042
     Dates: start: 20160616
  56. PREDNISONE. [Suspect]
     Active Substance: PREDNISONE
     Dosage: DAYS 1-5 OF EACH 21-DAY CYCLE, MOST RECENT DOSE PRIOR TO ONSET OF NEUTROPENIA (FIRST EPISODE, SECOND
     Route: 048
     Dates: start: 20160510
  57. LOVENOX [Concomitant]
     Active Substance: ENOXAPARIN SODIUM
     Route: 065
     Dates: start: 20160423, end: 20160426
  58. AMLODIPIN [Concomitant]
     Active Substance: AMLODIPINE BESYLATE
     Indication: HYPERTENSION
     Route: 065
     Dates: start: 20160227, end: 20160227
  59. PANTOLOC [Concomitant]
     Active Substance: PANTOPRAZOLE SODIUM
     Indication: PROPHYLAXIS
     Route: 065
  60. ENDOXAN ^BAXTER^ 200 MG - TROCKENSTECHAMPULLE [Suspect]
     Active Substance: CYCLOPHOSPHAMIDE
     Dosage: MOST RECENT DOSE PRIOR TO ONSET OF INCREASED CRP
     Route: 042
     Dates: start: 20160318
  61. ENDOXAN ^BAXTER^ 200 MG - TROCKENSTECHAMPULLE [Suspect]
     Active Substance: CYCLOPHOSPHAMIDE
     Dosage: MOST RECENT DOSE PRIOR TO ONSET OF NEUTROPENIA (SECOND EPISODE)
     Route: 042
     Dates: start: 20160527
  62. VENETOCLAX [Suspect]
     Active Substance: VENETOCLAX
     Dosage: MOST RECENT DOSE PRIOR TO ONSET OF NEUTROPENIA (FIRST EPISODE, FIRST OCCURENCE)
     Route: 048
     Dates: start: 20160306
  63. VENETOCLAX [Suspect]
     Active Substance: VENETOCLAX
     Dosage: MOST RECENT DOSE PRIOR TO ONSET OF NEUTROPENIA (SECOND EPISODE)
     Route: 048
     Dates: start: 20160623
  64. PREDNISONE. [Suspect]
     Active Substance: PREDNISONE
     Dosage: DAYS 1-5 OF EACH 21-DAY CYCLE, MOST RECENT DOSE PRIOR TO ONSET OF NEUTROPENIA (SECOND EPISODE)
     Route: 048
     Dates: start: 20160531
  65. ALLOPURINOL. [Concomitant]
     Active Substance: ALLOPURINOL
     Indication: PROPHYLAXIS
     Route: 065
     Dates: start: 20160224
  66. VENDAL [Concomitant]
     Indication: PAIN
     Route: 065
     Dates: start: 20160421, end: 20160425
  67. FORTECORTIN [Concomitant]
     Active Substance: DEXAMETHASONE
     Indication: PRODUCT USED FOR UNKNOWN INDICATION
     Route: 065
  68. ELOMEL [Concomitant]
     Indication: PRODUCT USED FOR UNKNOWN INDICATION
     Route: 065

REACTIONS (6)
  - Neutropenia [Recovered/Resolved]
  - Neutropenia [Recovered/Resolved]
  - Neutropenia [Recovered/Resolved]
  - Febrile neutropenia [Recovered/Resolved]
  - White blood cell count decreased [Unknown]
  - C-reactive protein increased [Not Recovered/Not Resolved]

NARRATIVE: CASE EVENT DATE: 20160311
